FAERS Safety Report 9639775 (Version 2)
Quarter: 2013Q4

REPORT INFORMATION
  Report Type: Spontaneous
  Country: US (occurrence: US)
  Receive Date: 20131023
  Receipt Date: 20131206
  Transmission Date: 20140711
  Serious: Yes (Death)
  Sender: FDA-Public Use
  Company Number: US-JNJFOC-20131012108

PATIENT
  Sex: 0

DRUGS (2)
  1. TYLENOL [Suspect]
     Indication: PAIN MANAGEMENT
     Route: 065
  2. TYLENOL [Suspect]
     Indication: PAIN PROPHYLAXIS
     Route: 065

REACTIONS (1)
  - Accidental overdose [Fatal]
